FAERS Safety Report 22353672 (Version 2)
Quarter: 2023Q2

REPORT INFORMATION
  Report Type: Spontaneous
  Country: US (occurrence: US)
  Receive Date: 20230523
  Receipt Date: 20230608
  Transmission Date: 20230722
  Serious: No
  Sender: FDA-Public Use
  Company Number: US-LEO Pharma-352220

PATIENT
  Sex: Female

DRUGS (1)
  1. ADBRY [Suspect]
     Active Substance: TRALOKINUMAB-LDRM
     Indication: Dermatitis atopic
     Dosage: DOSAGE: 300 MG SUBCUTANEOUSLY EVERY TWO WEEKS
     Route: 058
     Dates: start: 202206

REACTIONS (2)
  - Injection site erythema [Recovered/Resolved]
  - Pigmentation disorder [Unknown]
